FAERS Safety Report 14812751 (Version 1)
Quarter: 2018Q2

REPORT INFORMATION
  Report Type: Report from Study
  Country: FR (occurrence: FR)
  Receive Date: 20180426
  Receipt Date: 20180426
  Transmission Date: 20180711
  Serious: Yes (Other)
  Sender: FDA-Public Use
  Company Number: PHHY2018FR038623

PATIENT
  Age: 7 Year
  Sex: Female

DRUGS (5)
  1. OMNITROPE [Suspect]
     Active Substance: SOMATROPIN
     Indication: SMALL FOR DATES BABY
     Dosage: 0.25 UG/KG, QD
     Route: 058
     Dates: start: 20121126
  2. FLUOSTEROL [Concomitant]
     Indication: PROPHYLAXIS
     Dosage: 22.5 MG, QD
     Route: 048
     Dates: start: 200909
  3. UVEDOSE [Concomitant]
     Active Substance: CHOLECALCIFEROL
     Indication: HYPOPHOSPHATAEMIC RICKETS
     Dosage: 100000 U, EVERY 3 MONTH
     Route: 048
     Dates: start: 201801
  4. UN ALFA [Concomitant]
     Active Substance: ALFACALCIDOL
     Indication: HYPOPHOSPHATAEMIC RICKETS
     Dosage: 2.4 UG, QD
     Route: 048
     Dates: start: 201207
  5. PHOSPHONEUROS [Concomitant]
     Active Substance: CALCIUM PHOSPHATE, DIBASIC, ANHYDROUS\MAGNESIUM GLYCEROPHOSPHATE\PHOSPHORIC ACID\SODIUM PHOSPHATE, DIBASIC
     Indication: HYPOPHOSPHATAEMIC RICKETS
     Dosage: 1120 MG, QD
     Route: 048
     Dates: start: 201003

REACTIONS (3)
  - Arthralgia [Recovered/Resolved]
  - Gingival abscess [Recovered/Resolved]
  - Weight increased [Not Recovered/Not Resolved]

NARRATIVE: CASE EVENT DATE: 201706
